FAERS Safety Report 23246948 (Version 2)
Quarter: 2023Q4

REPORT INFORMATION
  Report Type: Spontaneous
  Country: CN (occurrence: CN)
  Receive Date: 20231130
  Receipt Date: 20231205
  Transmission Date: 20240109
  Serious: Yes (Other)
  Sender: FDA-Public Use
  Company Number: CN-PFIZER INC-PV202300193240

PATIENT
  Age: 50 Year
  Sex: Female

DRUGS (4)
  1. EPIRUBICIN HYDROCHLORIDE [Suspect]
     Active Substance: EPIRUBICIN HYDROCHLORIDE
     Indication: Chemotherapy
     Dosage: 140 MG, 1X/DAY
     Route: 041
     Dates: start: 20231107, end: 20231107
  2. EPIRUBICIN HYDROCHLORIDE [Suspect]
     Active Substance: EPIRUBICIN HYDROCHLORIDE
     Indication: Breast cancer female
  3. CYCLOPHOSPHAMIDE [Concomitant]
     Active Substance: CYCLOPHOSPHAMIDE
     Indication: Chemotherapy
     Dosage: 0.8 G, 1X/DAY
     Route: 041
     Dates: start: 20231107, end: 20231107
  4. CYCLOPHOSPHAMIDE [Concomitant]
     Active Substance: CYCLOPHOSPHAMIDE
     Indication: Breast cancer female

REACTIONS (5)
  - Myelosuppression [Recovering/Resolving]
  - Hyperbilirubinaemia [Unknown]
  - Sleep disorder [Unknown]
  - Sinus arrhythmia [Unknown]
  - Nausea [Unknown]

NARRATIVE: CASE EVENT DATE: 20231101
